FAERS Safety Report 5982900-4 (Version None)
Quarter: 2008Q4

REPORT INFORMATION
  Report Type: 
  Country: None (occurrence: None)
  Receive Date: 20081205
  Receipt Date: 20081205
  Transmission Date: 20090506
  Serious: No
  Sender: FDA-Public Use
  Company Number: None

PATIENT
  Age: 49 Year
  Sex: Female
  Weight: 67.1324 kg

DRUGS (1)
  1. VICODIN [Suspect]
     Indication: PAIN
     Dosage: 1X PO
     Route: 048
     Dates: start: 20081203, end: 20081204

REACTIONS (3)
  - DIZZINESS [None]
  - PARAESTHESIA [None]
  - VOMITING [None]
